FAERS Safety Report 25079759 (Version 1)
Quarter: 2025Q1

REPORT INFORMATION
  Report Type: Spontaneous
  Country: US (occurrence: US)
  Receive Date: 20250314
  Receipt Date: 20250314
  Transmission Date: 20250408
  Serious: No
  Sender: VIIV
  Company Number: US-VIIV HEALTHCARE- US2025029132

PATIENT
  Age: 51 Year
  Sex: Male

DRUGS (1)
  1. DOVATO [Suspect]
     Active Substance: DOLUTEGRAVIR SODIUM\LAMIVUDINE
     Indication: HIV infection
     Dosage: 50-300 MG, QD
     Dates: start: 2023

REACTIONS (1)
  - Product dose omission issue [Unknown]

NARRATIVE: CASE EVENT DATE: 20250306
